FAERS Safety Report 6679793-9 (Version None)
Quarter: 2010Q2

REPORT INFORMATION
  Report Type: 
  Country: None (occurrence: None)
  Receive Date: 20100413
  Receipt Date: 20090217
  Transmission Date: 20101027
  Serious: No
  Sender: FDA-Public Use
  Company Number: US-ASTRAZENECA-2009UW02167

PATIENT
  Age: 85 Year
  Sex: Female

DRUGS (6)
  1. TENORMIN [Suspect]
     Indication: TACHYCARDIA
     Route: 048
     Dates: start: 19790101
  2. TENORMIN [Suspect]
     Indication: HYPERTENSION
     Route: 048
     Dates: start: 19790101
  3. HYDROCHLOROTHIAZIDE [Concomitant]
  4. ASPIRIN [Concomitant]
  5. PRAVACHOL [Concomitant]
  6. ANTIBIOTIC [Concomitant]

REACTIONS (4)
  - ABDOMINAL PAIN UPPER [None]
  - ASTHENIA [None]
  - FATIGUE [None]
  - ILL-DEFINED DISORDER [None]
